FAERS Safety Report 8027038-X (Version None)
Quarter: 2012Q1

REPORT INFORMATION
  Report Type: 
  Country: None (occurrence: None)
  Receive Date: 20120106
  Receipt Date: 20120103
  Transmission Date: 20120608
  Serious: Yes (Hospitalization, Other)
  Sender: FDA-Public Use
  Company Number: US-PFIZER INC-2010110261

PATIENT
  Sex: Female
  Weight: 52.154 kg

DRUGS (10)
  1. CAPOTEN [Concomitant]
     Indication: HYPERTENSION
     Dosage: 50 MG, 3X/DAY
     Route: 048
     Dates: start: 20101016
  2. SUTENT [Suspect]
     Dosage: 25 MG, DAILY
     Route: 048
     Dates: start: 20110901, end: 20111123
  3. INTERFERON [Concomitant]
     Dosage: UNK
     Dates: start: 20111001, end: 20111101
  4. INTERFERON [Concomitant]
     Indication: RENAL CELL CARCINOMA
     Dosage: UNK
     Dates: start: 20111001, end: 20111101
  5. SUTENT [Suspect]
     Indication: RENAL CELL CARCINOMA
     Dosage: 50 MG, 1X/DAY, 28 DAYS
     Route: 048
     Dates: start: 20100812, end: 20101208
  6. DILAUDID [Concomitant]
     Indication: PAIN
     Dosage: 2 MG, EVERY 3 HOURS
     Route: 048
     Dates: start: 20100803
  7. DILAUDID [Concomitant]
     Dosage: UNK
  8. ATENOLOL [Concomitant]
     Indication: HYPERTENSION
     Dosage: 50 MG, 2X/DAY
     Route: 048
     Dates: start: 20100909
  9. NORVASC [Concomitant]
     Indication: HYPERTENSION
     Dosage: 10 MG, 1X/DAY
     Route: 048
     Dates: start: 20101118
  10. COLACE [Concomitant]
     Dosage: AS NEEDED
     Route: 048
     Dates: start: 20100803

REACTIONS (13)
  - NAUSEA [None]
  - MENSTRUATION IRREGULAR [None]
  - WEIGHT DECREASED [None]
  - HYPERTENSION [None]
  - BLOOD PRESSURE INCREASED [None]
  - FATIGUE [None]
  - ABDOMINAL ABSCESS [None]
  - VOMITING [None]
  - CONFUSIONAL STATE [None]
  - YELLOW SKIN [None]
  - PRURITUS GENERALISED [None]
  - DIARRHOEA [None]
  - ABDOMINAL PAIN [None]
